FAERS Safety Report 6561464-0 (Version None)
Quarter: 2010Q1

REPORT INFORMATION
  Report Type: 
  Country: None (occurrence: None)
  Receive Date: 20100130
  Receipt Date: 20091012
  Transmission Date: 20100710
  Serious: No
  Sender: FDA-Public Use
  Company Number: US-ABBOTT-09P-163-0602677-00

PATIENT
  Sex: Female
  Weight: 63.56 kg

DRUGS (8)
  1. HUMIRA [Suspect]
     Indication: RHEUMATOID ARTHRITIS
     Dates: start: 20080101
  2. METHOTREXATE [Concomitant]
     Indication: RHEUMATOID ARTHRITIS
  3. CELEBREX [Concomitant]
     Indication: RHEUMATOID ARTHRITIS
  4. FOLIC ACID [Concomitant]
     Indication: RHEUMATOID ARTHRITIS
  5. PREVACID [Concomitant]
     Indication: ABDOMINAL DISCOMFORT
  6. ALLEGRA [Concomitant]
     Indication: HYPERSENSITIVITY
  7. ACZONE [Concomitant]
     Indication: ACNE
  8. CYCLOBENZAPRINE [Concomitant]
     Indication: SLEEP DISORDER THERAPY

REACTIONS (1)
  - SKIN DISCOLOURATION [None]
